FAERS Safety Report 8535994-6 (Version None)
Quarter: 2012Q3

REPORT INFORMATION
  Report Type: 
  Country: None (occurrence: None)
  Receive Date: 20120725
  Receipt Date: 20120723
  Transmission Date: 20120928
  Serious: Yes (Other)
  Sender: FDA-Public Use
  Company Number: PHFR2012IE002694

PATIENT
  Sex: Male

DRUGS (2)
  1. ANTIBIOTICS [Concomitant]
     Indication: PROPHYLAXIS
     Dosage: UNK UKN, UNK
  2. CLOZARIL [Suspect]
     Indication: SCHIZOPHRENIA
     Dosage: 350 MG, DAILY
     Route: 048
     Dates: start: 20080924

REACTIONS (3)
  - SPHEROCYTIC ANAEMIA [None]
  - LYMPHOCYTOSIS [None]
  - RED BLOOD CELL MORPHOLOGY ABNORMAL [None]
